FAERS Safety Report 19140164 (Version 2)
Quarter: 2021Q3

REPORT INFORMATION
  Report Type: Spontaneous
  Country: DE (occurrence: DE)
  Receive Date: 20210415
  Receipt Date: 20210911
  Transmission Date: 20211014
  Serious: Yes (Hospitalization, Other)
  Sender: FDA-Public Use
  Company Number: NVSC2021DE077604

PATIENT
  Sex: Female
  Weight: 65 kg

DRUGS (4)
  1. EPHEDRINE. [Suspect]
     Active Substance: EPHEDRINE
     Indication: PRODUCT USED FOR UNKNOWN INDICATION
     Dosage: 75 MG
     Route: 065
  2. PANDEMRIX [Suspect]
     Active Substance: INFLUENZA VIRUS VACCINE, SWINE
     Indication: PROPHYLAXIS
     Dosage: UNK
     Route: 030
     Dates: start: 20091120
  3. EPHEDRINE. [Suspect]
     Active Substance: EPHEDRINE
     Dosage: 50 MG, QD (25 MG, BID)
     Route: 065
     Dates: start: 20170607
  4. RITALIN [Suspect]
     Active Substance: METHYLPHENIDATE HYDROCHLORIDE
     Indication: PRODUCT USED FOR UNKNOWN INDICATION
     Dosage: 10 MG
     Route: 065
     Dates: start: 20170608

REACTIONS (45)
  - Snoring [Unknown]
  - Cataplexy [Recovering/Resolving]
  - Feeling cold [Unknown]
  - Hypoaesthesia [Unknown]
  - Epigastric discomfort [Unknown]
  - Anxiety [Unknown]
  - Dizziness [Unknown]
  - Sleep disorder [Unknown]
  - Sleep talking [Unknown]
  - Vertigo [Unknown]
  - Reaction to excipient [Unknown]
  - Cough [Unknown]
  - Muscular weakness [Unknown]
  - Balance disorder [Unknown]
  - Poor quality sleep [Unknown]
  - Cystitis [Unknown]
  - Somnolence [Unknown]
  - Abnormal dreams [Unknown]
  - Inappropriate affect [Unknown]
  - Circadian rhythm sleep disorder [Unknown]
  - Fatigue [Unknown]
  - Affect lability [Unknown]
  - Gastritis [Unknown]
  - Rhinorrhoea [Unknown]
  - Middle insomnia [Unknown]
  - Rapid eye movements sleep abnormal [Unknown]
  - Bruxism [Unknown]
  - Gait disturbance [Unknown]
  - Disturbance in attention [Unknown]
  - Hallucination [Recovered/Resolved]
  - Feeling abnormal [Unknown]
  - Nasopharyngitis [Unknown]
  - Decreased appetite [Unknown]
  - Sneezing [Unknown]
  - Peripheral coldness [Unknown]
  - Weight increased [Unknown]
  - Weight decreased [Unknown]
  - Sleep paralysis [Recovered/Resolved]
  - Nausea [Unknown]
  - Headache [Recovered/Resolved]
  - Sleep attacks [Unknown]
  - Nightmare [Unknown]
  - Narcolepsy [Not Recovered/Not Resolved]
  - Sleep apnoea syndrome [Unknown]
  - Asthenia [Unknown]

NARRATIVE: CASE EVENT DATE: 201003
